FAERS Safety Report 17396057 (Version 1)
Quarter: 2020Q1

REPORT INFORMATION
  Report Type: Spontaneous
  Country: US (occurrence: US)
  Receive Date: 20200210
  Receipt Date: 20200210
  Transmission Date: 20200409
  Serious: No
  Sender: FDA-Public Use
  Company Number: US-VERTEX PHARMACEUTICALS-2020-002115

PATIENT
  Sex: Male

DRUGS (2)
  1. TRIKAFTA [Suspect]
     Active Substance: ELEXACAFTOR\IVACAFTOR\TEZACAFTOR
     Indication: CYSTIC FIBROSIS
     Dosage: 2 ORANGE TALETS IN AM; 1 BLUE TABLET ON PM
     Route: 048
  2. CAYSTON [Concomitant]
     Active Substance: AZTREONAM

REACTIONS (1)
  - Nasopharyngitis [Unknown]
